FAERS Safety Report 6201352-2 (Version None)
Quarter: 2009Q2

REPORT INFORMATION
  Report Type: 
  Country: None (occurrence: None)
  Receive Date: 20090526
  Receipt Date: 20090518
  Transmission Date: 20091009
  Serious: Yes (Death)
  Sender: FDA-Public Use
  Company Number: PHHY2009TN19223

PATIENT
  Age: 56 Year

DRUGS (6)
  1. CYCLOSPORINE [Suspect]
     Indication: STEM CELL TRANSPLANT
     Dosage: 3 MG/KG/DAY
     Route: 042
  2. METHOTREXATE [Suspect]
     Indication: STEM CELL TRANSPLANT
     Dosage: 15 MG/M^2
  3. METHOTREXATE [Suspect]
     Dosage: 10 MG/M^2
  4. MELPHALAN [Suspect]
     Indication: MULTIPLE MYELOMA
     Dosage: 200 MG/M^2
  5. ACYCLOVIR SODIUM [Concomitant]
     Indication: HERPES VIRUS INFECTION
     Dosage: 500 MG/M^2/8 H
  6. NEUPOGEN [Concomitant]
     Dosage: 5 UG/KG/DAY

REACTIONS (3)
  - CYTOMEGALOVIRUS INFECTION [None]
  - HISTIOCYTOSIS HAEMATOPHAGIC [None]
  - MULTI-ORGAN FAILURE [None]
